FAERS Safety Report 7779875-4 (Version None)
Quarter: 2011Q3

REPORT INFORMATION
  Report Type: 
  Country: None (occurrence: None)
  Receive Date: 20110927
  Receipt Date: 20110913
  Transmission Date: 20111222
  Serious: No
  Sender: FDA-Public Use
  Company Number: US-B.I. PHARMACEUTICALS,INC./RIDGEFIELD-2011-BP-19690BP

PATIENT
  Sex: Male

DRUGS (7)
  1. PRADAXA [Suspect]
     Indication: ATRIAL FIBRILLATION
     Dosage: 300 MG
     Route: 048
     Dates: end: 20110114
  2. BETAPACE [Concomitant]
     Dosage: 320 MG
  3. TRILIPIX [Concomitant]
  4. DIOVAN [Concomitant]
  5. CARDIZEM [Concomitant]
  6. ALTACE [Concomitant]
  7. ZOCOR [Concomitant]

REACTIONS (2)
  - RASH [None]
  - TONGUE DISORDER [None]
